FAERS Safety Report 5491175-4 (Version None)
Quarter: 2007Q4

REPORT INFORMATION
  Report Type: 
  Country: None (occurrence: None)
  Receive Date: 20071019
  Receipt Date: 20071009
  Transmission Date: 20080405
  Serious: Yes (Other)
  Sender: FDA-Public Use
  Company Number: NO-PFIZER INC-2007084936

PATIENT
  Age: 43 Year
  Sex: Female

DRUGS (1)
  1. LINEZOLID [Suspect]

REACTIONS (3)
  - DIZZINESS [None]
  - TREMOR [None]
  - VISION BLURRED [None]
